FAERS Safety Report 19184571 (Version 6)
Quarter: 2022Q4

REPORT INFORMATION
  Report Type: Report from Study
  Country: US (occurrence: US)
  Receive Date: 20210427
  Receipt Date: 20221215
  Transmission Date: 20230113
  Serious: No
  Sender: FDA-Public Use
  Company Number: NVSC2021US090605

PATIENT
  Sex: Female

DRUGS (1)
  1. KESIMPTA [Suspect]
     Active Substance: OFATUMUMAB
     Indication: Multiple sclerosis
     Route: 058

REACTIONS (6)
  - Muscle spasms [Unknown]
  - Blood creatinine increased [Unknown]
  - Sinus congestion [Unknown]
  - Chills [Unknown]
  - Sinusitis [Unknown]
  - Drug ineffective [Unknown]
